FAERS Safety Report 12310846 (Version 1)
Quarter: 2016Q2

REPORT INFORMATION
  Report Type: Not Available
  Country: US (occurrence: US)
  Receive Date: 20160427
  Receipt Date: 20160427
  Transmission Date: 20160815
  Serious: No
  Sender: FDA-Public Use
  Company Number: US-CIPHERPHARMA-2016-US-002454

PATIENT
  Age: 46 Year
  Sex: Female
  Weight: 60.78 kg

DRUGS (1)
  1. SITAVIG [Suspect]
     Active Substance: ACYCLOVIR
     Dosage: 1 TABLET
     Route: 048
     Dates: start: 20160401, end: 20160401

REACTIONS (4)
  - Cheilitis [Recovered/Resolved]
  - Lip swelling [Recovered/Resolved]
  - Glossitis [Recovered/Resolved]
  - Swollen tongue [Recovered/Resolved]

NARRATIVE: CASE EVENT DATE: 20160401
